FAERS Safety Report 4712353-5 (Version None)
Quarter: 2005Q3

REPORT INFORMATION
  Report Type: 
  Country: None (occurrence: None)
  Receive Date: 20050712
  Receipt Date: 20050627
  Transmission Date: 20060218
  Serious: Yes (Hospitalization)
  Sender: FDA-Public Use
  Company Number: HQWYE958301JUL05

PATIENT
  Sex: Female
  Weight: 37 kg

DRUGS (4)
  1. ENBREL [Suspect]
     Indication: RHEUMATOID ARTHRITIS
     Route: 058
     Dates: start: 20010614, end: 20050401
  2. CORTICOSTEROID NOS [Concomitant]
  3. UNSPECIFIED ANTI-INFLAMMATORY AGENT [Concomitant]
  4. IRON [Concomitant]

REACTIONS (4)
  - ANAEMIA [None]
  - DIARRHOEA [None]
  - GALLBLADDER DISORDER [None]
  - WEIGHT DECREASED [None]
